FAERS Safety Report 9590700 (Version 1)
Quarter: 2013Q4

REPORT INFORMATION
  Report Type: Spontaneous
  Country: US (occurrence: US)
  Receive Date: 20131003
  Receipt Date: 20131003
  Transmission Date: 20140711
  Serious: No
  Sender: FDA-Public Use
  Company Number: US-AMGEN-USASP2012075786

PATIENT
  Sex: Female

DRUGS (14)
  1. ENBREL [Suspect]
     Indication: PRODUCT USED FOR UNKNOWN INDICATION
     Dosage: 50 MG, QWK
     Route: 058
  2. NAPROSYN                           /00256201/ [Concomitant]
     Dosage: 250 MG, UNK
  3. TYLENOL COLD                       /00446801/ [Concomitant]
     Dosage: UNK
  4. METHOTREXATE [Concomitant]
     Dosage: 2.5 MG, UNK
  5. TRICOR                             /00090101/ [Concomitant]
     Dosage: 48 MG, UNK
  6. LANTUS [Concomitant]
     Dosage: 100/ML
  7. ATENOLOL [Concomitant]
     Dosage: 100 MG, UNK
  8. LOVASTATIN [Concomitant]
     Dosage: 10 MG, UNK
  9. METFORMIN [Concomitant]
     Dosage: 500 MG, UNK
  10. LORAZEPAM [Concomitant]
     Dosage: 0.5 MG, UNK
  11. LOSARTAN HCT [Concomitant]
     Dosage: 100-25
  12. PREVACID [Concomitant]
     Dosage: 15 MG, UNK
  13. ACTOS [Concomitant]
     Dosage: 30 MG, UNK
  14. FOLIC ACID [Concomitant]
     Dosage: UNK

REACTIONS (1)
  - Drug ineffective [Unknown]
